FAERS Safety Report 14968473 (Version 1)
Quarter: 2018Q2

REPORT INFORMATION
  Report Type: Spontaneous
  Country: US (occurrence: US)
  Receive Date: 20180604
  Receipt Date: 20180604
  Transmission Date: 20180711
  Serious: No
  Sender: FDA-Public Use
  Company Number: US-AUROBINDO-AUR-APU-2017-39150

PATIENT
  Sex: Female
  Weight: 49.8 kg

DRUGS (2)
  1. ATORVASTATIN [Concomitant]
     Active Substance: ATORVASTATIN
     Indication: PRODUCT USED FOR UNKNOWN INDICATION
     Dosage: 10 MG, DAILY
     Route: 065
  2. VENLAFAXINE HYDROCHLORIDE EXTENDED-RELEASE CAPSULES 37.5MG [Suspect]
     Active Substance: VENLAFAXINE HYDROCHLORIDE
     Indication: MENOPAUSAL SYMPTOMS
     Dosage: 1 DF, DAILY
     Route: 065
     Dates: start: 20170717, end: 20170805

REACTIONS (4)
  - Drug withdrawal headache [Recovered/Resolved]
  - Withdrawal syndrome [Recovered/Resolved]
  - Hot flush [Recovered/Resolved]
  - Off label use [Unknown]
